FAERS Safety Report 9452670 (Version 4)
Quarter: 2014Q1

REPORT INFORMATION
  Report Type: Spontaneous
  Country: US (occurrence: US)
  Receive Date: 20130812
  Receipt Date: 20140220
  Transmission Date: 20141002
  Serious: Yes (Hospitalization, Other)
  Sender: FDA-Public Use
  Company Number: US-BAYER-2013-096850

PATIENT
  Age: 30 Year
  Sex: Female
  Weight: 113 kg

DRUGS (12)
  1. MIRENA [Suspect]
     Indication: CONTRACEPTION
     Dosage: 20 MCG/24HR, CONT
     Route: 015
     Dates: start: 2007, end: 20130301
  2. DEPAKOTE [Concomitant]
     Dosage: 500 UNK EVERY EVENING
     Dates: start: 2010, end: 2013
  3. DEPAKOTE [Concomitant]
     Dosage: 250, UNK EVERY MORNING
  4. BENZTROPINE [Concomitant]
     Dosage: 1 MG, TID
     Dates: start: 2010, end: 2013
  5. PROPRANOLOL [Concomitant]
     Dosage: 20 THREE TIMES A DAY
     Dates: start: 2010, end: 2013
  6. HALDOL [Concomitant]
     Dosage: UNK
     Dates: start: 2010, end: 2013
  7. ZOLOFT [Concomitant]
     Dosage: 100 TWICE A DAY
     Dates: start: 2010, end: 2013
  8. PRAVASTATIN [Concomitant]
     Dosage: 40 MG, DAILY
  9. VISTARIL [Concomitant]
     Dosage: 50 THREE TIMES A DAY
  10. MELATONIN [Concomitant]
     Dosage: 5 EVERY EVENING
  11. GEODON [Concomitant]
     Dosage: 80 TWICE A DAY
  12. MIRTAZAPINE [Concomitant]
     Dosage: 30 MG, AT BEDTIME
     Route: 048

REACTIONS (9)
  - Uterine perforation [None]
  - Genital haemorrhage [None]
  - Dyspareunia [None]
  - Injury [None]
  - Pain [None]
  - Emotional distress [None]
  - Depression [None]
  - Anxiety [None]
  - Device misuse [None]
